FAERS Safety Report 5367040-X (Version None)
Quarter: 2007Q2

REPORT INFORMATION
  Report Type: 
  Country: None (occurrence: None)
  Receive Date: 20070622
  Receipt Date: 20070614
  Transmission Date: 20071010
  Serious: Yes (Other)
  Sender: FDA-Public Use
  Company Number: A0659031A

PATIENT
  Age: 27 Year
  Sex: Female

DRUGS (1)
  1. ZANTAC [Suspect]
     Dosage: 2ML SINGLE DOSE
     Route: 042
     Dates: start: 20070611, end: 20070611

REACTIONS (5)
  - DIZZINESS [None]
  - DYSPNOEA [None]
  - PHARMACEUTICAL PRODUCT COMPLAINT [None]
  - PRURITUS [None]
  - URTICARIA [None]
